FAERS Safety Report 6286825-9 (Version None)
Quarter: 2009Q3

REPORT INFORMATION
  Report Type: 
  Country: None (occurrence: None)
  Receive Date: 20090727
  Receipt Date: 20090727
  Transmission Date: 20100115
  Serious: Yes (Other)
  Sender: FDA-Public Use
  Company Number: None

PATIENT
  Age: 36 Year
  Sex: Female
  Weight: 52 kg

DRUGS (3)
  1. SOLU-MEDROL [Suspect]
     Indication: MULTIPLE SCLEROSIS
     Dosage: 1 GM IVPB QD
     Route: 042
     Dates: start: 20090715
  2. SOLU-MEDROL [Suspect]
     Indication: MULTIPLE SCLEROSIS
     Dosage: 1 GM IVPB QD
     Route: 042
     Dates: start: 20090716
  3. SOLU-MEDROL [Suspect]

REACTIONS (6)
  - ASTHENIA [None]
  - CHEST PAIN [None]
  - FATIGUE [None]
  - FLUSHING [None]
  - INFUSION RELATED REACTION [None]
  - PALLOR [None]
